FAERS Safety Report 7062794-9 (Version None)
Quarter: 2010Q4

REPORT INFORMATION
  Report Type: 
  Country: None (occurrence: None)
  Receive Date: 20101026
  Receipt Date: 20100202
  Transmission Date: 20110411
  Serious: No
  Sender: FDA-Public Use
  Company Number: US-PFIZER INC-2009310366

PATIENT
  Sex: Male
  Weight: 83.9 kg

DRUGS (4)
  1. LIPITOR [Suspect]
     Indication: BLOOD CHOLESTEROL INCREASED
     Dosage: 20 MG EVERY OTHER DAY
     Route: 048
     Dates: start: 20010101
  2. LIPITOR [Suspect]
     Indication: MYOCARDIAL INFARCTION
     Dosage: 10 MG EVERY OTHER DAY
     Route: 048
     Dates: start: 20010101
  3. ACETYLSALICYLIC ACID [Concomitant]
     Dosage: 81 MG, UNK
  4. METOPROLOL [Concomitant]
     Dosage: 25 MG, UNK

REACTIONS (2)
  - DYSGEUSIA [None]
  - LOW DENSITY LIPOPROTEIN INCREASED [None]
